FAERS Safety Report 11374970 (Version 1)
Quarter: 2015Q3

REPORT INFORMATION
  Report Type: Spontaneous
  Country: US (occurrence: US)
  Receive Date: 20150813
  Receipt Date: 20150813
  Transmission Date: 20151125
  Serious: No
  Sender: FDA-Public Use
  Company Number: US-BAYER-2015-397806

PATIENT
  Sex: Female

DRUGS (1)
  1. MIRALAX [Suspect]
     Active Substance: POLYETHYLENE GLYCOL 3350
     Indication: CONSTIPATION
     Dosage: UNK

REACTIONS (6)
  - Glossodynia [Unknown]
  - Eye pruritus [Unknown]
  - Skin warm [Unknown]
  - Pruritus [Unknown]
  - Hypoaesthesia oral [Unknown]
  - Drug hypersensitivity [Unknown]
